FAERS Safety Report 15652926 (Version 1)
Quarter: 2018Q4

REPORT INFORMATION
  Report Type: Spontaneous
  Country: US (occurrence: US)
  Receive Date: 20181123
  Receipt Date: 20181123
  Transmission Date: 20190205
  Serious: Yes (Hospitalization)
  Sender: FDA-Public Use
  Company Number: US-NOVOPROD-599516

PATIENT
  Age: 64 Year
  Sex: Male

DRUGS (4)
  1. NOVOLOG [Suspect]
     Active Substance: INSULIN ASPART
     Indication: TYPE 2 DIABETES MELLITUS
     Dosage: 8 UNITS PRIOR TO MEALS WITH SLIDING SCALE IF NEEDED
     Route: 058
     Dates: start: 201803, end: 2018
  2. LANTUS [Suspect]
     Active Substance: INSULIN GLARGINE
     Dosage: DECREASED DOSE
     Route: 058
     Dates: start: 2018, end: 2018
  3. NOVOLOG [Suspect]
     Active Substance: INSULIN ASPART
     Dosage: 5 UNITS 15 MINS BEFORE MEALS WITH SLIDING SCALE IF NEEDED
     Route: 058
     Dates: start: 2018, end: 2018
  4. LANTUS [Suspect]
     Active Substance: INSULIN GLARGINE
     Indication: TYPE 2 DIABETES MELLITUS
     Dosage: 15 U, QD (AT NIGHT)
     Route: 058
     Dates: start: 201804, end: 2018

REACTIONS (3)
  - Drug hypersensitivity [Not Recovered/Not Resolved]
  - Depression [Unknown]
  - Blood glucose increased [Not Recovered/Not Resolved]

NARRATIVE: CASE EVENT DATE: 2018
